FAERS Safety Report 5499065-8 (Version None)
Quarter: 2007Q4

REPORT INFORMATION
  Report Type: 
  Country: None (occurrence: None)
  Receive Date: 20071026
  Receipt Date: 20070806
  Transmission Date: 20080405
  Serious: No
  Sender: FDA-Public Use
  Company Number: A0652956A

PATIENT
  Sex: Female

DRUGS (4)
  1. ADVAIR DISKUS 100/50 [Suspect]
     Dosage: 2Z CUMULATIVE DOSE
  2. ALBUTEROL [Suspect]
     Route: 065
  3. BENADRYL [Concomitant]
  4. THEO-DUR [Concomitant]

REACTIONS (4)
  - FACE OEDEMA [None]
  - PALPITATIONS [None]
  - RHINITIS [None]
  - THROAT TIGHTNESS [None]
